FAERS Safety Report 7007841-5 (Version None)
Quarter: 2010Q3

REPORT INFORMATION
  Report Type: 
  Country: None (occurrence: None)
  Receive Date: 20100922
  Receipt Date: 20100914
  Transmission Date: 20110219
  Serious: Yes (Other)
  Sender: FDA-Public Use
  Company Number: US-ROCHE-727450

PATIENT
  Age: 58 Year
  Sex: Female

DRUGS (2)
  1. BEVACIZUMAB [Suspect]
     Route: 065
     Dates: start: 20070801
  2. ABRAXANE [Suspect]
     Route: 065
     Dates: start: 20070801

REACTIONS (1)
  - MACULAR OEDEMA [None]
